FAERS Safety Report 7735282-1 (Version None)
Quarter: 2011Q3

REPORT INFORMATION
  Report Type: 
  Country: None (occurrence: None)
  Receive Date: 20110907
  Receipt Date: 20110830
  Transmission Date: 20111222
  Serious: Yes (Other)
  Sender: FDA-Public Use
  Company Number: IN-ABBOTT-11P-078-0836449-00

PATIENT
  Age: 28 Year
  Sex: Female

DRUGS (4)
  1. RISPERIDONE [Concomitant]
     Indication: BIPOLAR DISORDER
     Dates: start: 20091101, end: 20100401
  2. VALPROIC ACID [Suspect]
     Indication: BIPOLAR DISORDER
     Dates: start: 20091101, end: 20100401
  3. VALPROIC ACID [Suspect]
     Dates: start: 20100401, end: 20100501
  4. HALOPERIDOL [Concomitant]
     Indication: BIPOLAR DISORDER
     Dates: start: 20100401

REACTIONS (1)
  - NEUTROPENIA [None]
